APPROVED DRUG PRODUCT: NORINYL 1+50 28-DAY
Active Ingredient: MESTRANOL; NORETHINDRONE
Strength: 0.05MG;1MG
Dosage Form/Route: TABLET;ORAL-28
Application: N016659 | Product #001
Applicant: ACTAVIS LABORATORIES UT INC
Approved: Approved Prior to Jan 1, 1982 | RLD: Yes | RS: No | Type: DISCN